FAERS Safety Report 9010866 (Version 2)
Quarter: 2013Q2

REPORT INFORMATION
  Report Type: Spontaneous
  Country: PT (occurrence: PT)
  Receive Date: 20130109
  Receipt Date: 20130502
  Transmission Date: 20140414
  Serious: Yes (Hospitalization)
  Sender: FDA-Public Use
  Company Number: PT-B.I. PHARMACEUTICALS,INC./RIDGEFIELD-2013-BI-00338PO

PATIENT
  Age: 59 Year
  Sex: Female

DRUGS (6)
  1. PRADAXA [Suspect]
     Indication: ATRIAL FIBRILLATION
     Dosage: 220 MG
     Dates: start: 20120206
  2. PRADAXA [Suspect]
  3. ATORVASTATIN [Concomitant]
     Dosage: 10 MG
  4. ALPRAZOLAM [Concomitant]
     Dosage: 0.5 MG
  5. PERINDOPRIL/INDAPAMIDE [Concomitant]
     Dosage: INDAPAMIDE 2.5 MG/DAY
  6. OMEPRAZOLE [Concomitant]
     Dosage: 20 MG

REACTIONS (4)
  - Ischaemic stroke [Recovered/Resolved with Sequelae]
  - Hemiparesis [Recovered/Resolved with Sequelae]
  - VIIth nerve paralysis [Recovered/Resolved with Sequelae]
  - Dysarthria [Recovered/Resolved with Sequelae]
